FAERS Safety Report 18876705 (Version 2)
Quarter: 2021Q3

REPORT INFORMATION
  Report Type: Spontaneous
  Country: US (occurrence: US)
  Receive Date: 20210211
  Receipt Date: 20210706
  Transmission Date: 20211014
  Serious: Yes (Other)
  Sender: FDA-Public Use
  Company Number: US-GILEAD-2021-0515607

PATIENT
  Age: 42 Year
  Sex: Male
  Weight: 74.83 kg

DRUGS (27)
  1. NORVIR [Concomitant]
     Active Substance: RITONAVIR
  2. ACETAMINOPHEN. [Concomitant]
     Active Substance: ACETAMINOPHEN
  3. PEG [MACROGOL] [Concomitant]
  4. SEVELAMER [Concomitant]
     Active Substance: SEVELAMER
  5. TRUVADA [Suspect]
     Active Substance: EMTRICITABINE\TENOFOVIR DISOPROXIL FUMARATE
     Indication: HIV INFECTION
     Dosage: UNK
     Route: 048
     Dates: start: 2001
  6. CALCITRIOL. [Concomitant]
     Active Substance: CALCITRIOL
  7. OXYCODONE [Concomitant]
     Active Substance: OXYCODONE
  8. VALGANCICLOVIR. [Concomitant]
     Active Substance: VALGANCICLOVIR
  9. TRUVADA [Suspect]
     Active Substance: EMTRICITABINE\TENOFOVIR DISOPROXIL FUMARATE
     Dosage: UNK
     Route: 048
     Dates: start: 2004, end: 2015
  10. HYDROXYZINE [Concomitant]
     Active Substance: HYDROXYZINE HYDROCHLORIDE
  11. MYCOPHENOLATE [Concomitant]
     Active Substance: MYCOPHENOLIC ACID
  12. NIFEDIPINE. [Concomitant]
     Active Substance: NIFEDIPINE
  13. PANTOPRAZOLE [Concomitant]
     Active Substance: PANTOPRAZOLE
  14. SULFAMETHOXAZOLE AND TRIMETHOPRIM [Concomitant]
     Active Substance: SULFAMETHOXAZOLE\TRIMETHOPRIM
  15. VIREAD [Suspect]
     Active Substance: TENOFOVIR DISOPROXIL FUMARATE
     Indication: HIV INFECTION
     Dosage: UNK
     Route: 048
     Dates: start: 2001, end: 2004
  16. TACROLIMUS. [Concomitant]
     Active Substance: TACROLIMUS
  17. SENSIPAR [Concomitant]
     Active Substance: CINACALCET HYDROCHLORIDE
  18. CLONIDINE. [Concomitant]
     Active Substance: CLONIDINE
  19. METOPROLOL. [Concomitant]
     Active Substance: METOPROLOL
  20. PREDNISONE. [Concomitant]
     Active Substance: PREDNISONE
  21. RENAGEL [SEVELAMER CARBONATE] [Concomitant]
  22. TIVICAY [Concomitant]
     Active Substance: DOLUTEGRAVIR SODIUM
  23. ZIAGEN [Concomitant]
     Active Substance: ABACAVIR SULFATE
  24. ONDANSETRON [Concomitant]
     Active Substance: ONDANSETRON
  25. EPIVIR [Concomitant]
     Active Substance: LAMIVUDINE
  26. FOLIC ACID. [Concomitant]
     Active Substance: FOLIC ACID
  27. TRAMADOL. [Concomitant]
     Active Substance: TRAMADOL

REACTIONS (9)
  - Anhedonia [Not Recovered/Not Resolved]
  - Emotional distress [Not Recovered/Not Resolved]
  - Anxiety [Recovered/Resolved]
  - Depression [Recovered/Resolved]
  - Hyperparathyroidism [Recovered/Resolved]
  - End stage renal disease [Not Recovered/Not Resolved]
  - Pain [Not Recovered/Not Resolved]
  - Chronic kidney disease [Recovered/Resolved]
  - Acute kidney injury [Recovered/Resolved]

NARRATIVE: CASE EVENT DATE: 201305
